FAERS Safety Report 12217699 (Version 1)
Quarter: 2016Q1

REPORT INFORMATION
  Report Type: Spontaneous
  Country: US (occurrence: US)
  Receive Date: 20160329
  Receipt Date: 20160329
  Transmission Date: 20160526
  Serious: Yes (Other)
  Sender: FDA-Public Use
  Company Number: US-ASTELLAS-2016US010581

PATIENT
  Age: 79 Year
  Sex: Female

DRUGS (1)
  1. PROTOPIC [Suspect]
     Active Substance: TACROLIMUS
     Indication: STASIS DERMATITIS
     Dosage: UNK, UNKNOWN FREQ.
     Route: 061
     Dates: start: 201312, end: 201506

REACTIONS (3)
  - Non-Hodgkin^s lymphoma [Unknown]
  - Squamous cell carcinoma of skin [Unknown]
  - Wrong technique in product usage process [Unknown]

NARRATIVE: CASE EVENT DATE: 201403
